FAERS Safety Report 8375794-3 (Version None)
Quarter: 2012Q2

REPORT INFORMATION
  Report Type: 
  Country: None (occurrence: None)
  Receive Date: 20120518
  Receipt Date: 20120518
  Transmission Date: 20120825
  Serious: No
  Sender: FDA-Public Use
  Company Number: None

PATIENT
  Sex: Male

DRUGS (1)
  1. OPTIRAY 320 [Suspect]
     Dosage: ONCE IV
     Route: 042
     Dates: start: 20120412, end: 20120412

REACTIONS (1)
  - URTICARIA [None]
